FAERS Safety Report 15195504 (Version 2)
Quarter: 2018Q3

REPORT INFORMATION
  Report Type: Spontaneous
  Country: IT (occurrence: IT)
  Receive Date: 20180725
  Receipt Date: 20180727
  Transmission Date: 20181010
  Serious: Yes (Other)
  Sender: FDA-Public Use
  Company Number: PHHY2018IT053290

PATIENT
  Age: 66 Year
  Sex: Female

DRUGS (12)
  1. VOLTAREN [Suspect]
     Active Substance: DICLOFENAC SODIUM
     Indication: BACK PAIN
     Dosage: 1 DF, UNK
     Route: 030
     Dates: start: 20180511, end: 20180516
  2. GAVISCON ADVANCE [Concomitant]
     Active Substance: POTASSIUM BICARBONATE\SODIUM ALGINATE
     Indication: PRODUCT USED FOR UNKNOWN INDICATION
     Dosage: UNK
     Route: 065
  3. ADALAT [Concomitant]
     Active Substance: NIFEDIPINE
     Indication: HYPERTENSION
     Dosage: 1 DF, UNK
     Route: 048
  4. MUSCORIL [Interacting]
     Active Substance: THIOCOLCHICOSIDE
     Indication: BACK PAIN
     Dosage: 1 DF, UNK
     Route: 030
     Dates: start: 20180511, end: 20180516
  5. TORA?DOL [Interacting]
     Active Substance: KETOROLAC TROMETHAMINE
     Indication: BACK PAIN
     Dosage: 15 GTT, UNK
     Route: 048
     Dates: start: 20180511, end: 20180516
  6. EUTIROX [Concomitant]
     Active Substance: LEVOTHYROXINE SODIUM
     Indication: HYPOTHYROIDISM
     Dosage: 1 DF, UNK
     Route: 048
  7. BENTELAN [Interacting]
     Active Substance: BETAMETHASONE SODIUM PHOSPHATE
     Indication: BACK PAIN
     Dosage: 1 DF, UNK
     Route: 048
     Dates: start: 20180511, end: 20180516
  8. SPASMOMEN [Concomitant]
     Active Substance: OTILONIUM BROMIDE
     Indication: ABDOMINAL TENDERNESS
     Dosage: 1 DF, UNK
     Route: 048
  9. COLECALCIFEROL [Concomitant]
     Active Substance: CHOLECALCIFEROL
     Indication: PRODUCT USED FOR UNKNOWN INDICATION
     Route: 065
  10. COLECALCIFEROL [Concomitant]
     Active Substance: CHOLECALCIFEROL
     Dosage: UNK
     Route: 065
  11. TARGIN [Concomitant]
     Active Substance: NALOXONE HYDROCHLORIDE\OXYCODONE HYDROCHLORIDE
     Indication: BACK PAIN
     Dosage: 1 DF, UNK
     Route: 048
  12. CISTALGAN [Concomitant]
     Active Substance: FLAVOXATE HYDROCHLORIDE\PROPYPHENAZONE
     Indication: ABDOMINAL TENDERNESS
     Dosage: 1 DF, UNK
     Route: 048

REACTIONS (4)
  - Drug interaction [Recovering/Resolving]
  - Pelvic pain [Recovering/Resolving]
  - Haematochezia [Recovering/Resolving]
  - Mucous stools [Recovering/Resolving]

NARRATIVE: CASE EVENT DATE: 20180514
